FAERS Safety Report 8370076-8 (Version None)
Quarter: 2012Q2

REPORT INFORMATION
  Report Type: 
  Country: None (occurrence: None)
  Receive Date: 20120518
  Receipt Date: 20120508
  Transmission Date: 20120825
  Serious: Yes (Hospitalization, Disabling)
  Sender: FDA-Public Use
  Company Number: JP-SANOFI-AVENTIS-2012SA033390

PATIENT
  Age: 73 Year
  Sex: Female

DRUGS (3)
  1. EICOSAPENTAENOIC ACID [Suspect]
     Route: 065
  2. ASPIRIN [Suspect]
     Route: 065
  3. PLAVIX [Suspect]
     Route: 048

REACTIONS (3)
  - DIPLEGIA [None]
  - EXTRADURAL HAEMATOMA [None]
  - BACK PAIN [None]
